FAERS Safety Report 10505604 (Version 2)
Quarter: 2014Q4

REPORT INFORMATION
  Report Type: Spontaneous
  Country: US (occurrence: US)
  Receive Date: 20141008
  Receipt Date: 20141029
  Transmission Date: 20150528
  Serious: Yes (Other)
  Sender: FDA-Public Use
  Company Number: US-PFIZER INC-2014274527

PATIENT
  Age: 49 Year
  Sex: Male
  Weight: 121 kg

DRUGS (1)
  1. GEODON [Suspect]
     Active Substance: ZIPRASIDONE HYDROCHLORIDE\ZIPRASIDONE MESYLATE
     Indication: SCHIZOAFFECTIVE DISORDER
     Dosage: TWO 80 MG ^TABLETS^ TWICE A DAY OR FOUR 40 MG ^TABLETS^ FOUR TIMES A DAY
     Dates: start: 200705

REACTIONS (3)
  - Arthropathy [Unknown]
  - Staphylococcal infection [Unknown]
  - Impaired work ability [Unknown]

NARRATIVE: CASE EVENT DATE: 2014
